FAERS Safety Report 18053452 (Version 3)
Quarter: 2022Q3

REPORT INFORMATION
  Report Type: Spontaneous
  Country: JP (occurrence: JP)
  Receive Date: 20200722
  Receipt Date: 20220713
  Transmission Date: 20221027
  Serious: Yes (Other)
  Sender: FDA-Public Use
  Company Number: JP-GSKNCCC-CASE-00989618_AE-31525

PATIENT

DRUGS (4)
  1. FLUTICASONE FUROATE\VILANTEROL TRIFENATATE [Suspect]
     Active Substance: FLUTICASONE FUROATE\VILANTEROL TRIFENATATE
     Indication: Asthma
     Dosage: 100 ?G, QD
     Route: 055
     Dates: start: 20180918
  2. ROSUVASTATIN CALCIUM [Concomitant]
     Active Substance: ROSUVASTATIN CALCIUM
     Indication: Hypercholesterolaemia
     Dosage: 2.5 MG, QD
     Route: 048
     Dates: start: 20180918
  3. NEXIUM [Concomitant]
     Active Substance: ESOMEPRAZOLE MAGNESIUM
     Indication: Gastric ulcer
     Dosage: 20 MG, QD
     Route: 048
     Dates: start: 20200215
  4. PRANLUKAST CAPSULE [Concomitant]
     Indication: Asthma
     Dosage: 225 MG, BID
     Route: 048
     Dates: start: 20181227

REACTIONS (1)
  - Oesophageal candidiasis [Unknown]

NARRATIVE: CASE EVENT DATE: 20200714
